FAERS Safety Report 4833358-X (Version None)
Quarter: 2005Q4

REPORT INFORMATION
  Report Type: 
  Country: None (occurrence: None)
  Receive Date: 20051117
  Receipt Date: 20051108
  Transmission Date: 20060501
  Serious: Yes (Disabling, Other)
  Sender: FDA-Public Use
  Company Number: 2005154070

PATIENT
  Age: 73 Year
  Sex: Female
  Weight: 68 kg

DRUGS (3)
  1. AMLODIPINE [Suspect]
     Indication: BLOOD PRESSURE
     Dosage: 10 MG (10 MG, 1 IN 1 D), ORAL
     Route: 048
     Dates: start: 20041012, end: 20050822
  2. ACETAMINOPHEN W/ CODEINE [Concomitant]
  3. THYROXINE (LEVOTHYROXINE) [Concomitant]

REACTIONS (1)
  - PHOTOSENSITIVITY REACTION [None]
